FAERS Safety Report 6678012-7 (Version None)
Quarter: 2010Q2

REPORT INFORMATION
  Report Type: 
  Country: None (occurrence: None)
  Receive Date: 20100412
  Receipt Date: 20100312
  Transmission Date: 20101027
  Serious: No
  Sender: FDA-Public Use
  Company Number: US-BAYER-201013172BCC

PATIENT
  Age: 84 Year
  Sex: Female
  Weight: 40 kg

DRUGS (7)
  1. ALEVE (CAPLET) [Suspect]
     Indication: DRUG USE FOR UNKNOWN INDICATION
     Dosage: TOTAL DAILY DOSE: 440 MG  UNIT DOSE: 220 MG
     Route: 048
     Dates: start: 20100301
  2. LORAZEPAM [Concomitant]
     Route: 065
  3. POTASSIUM [Concomitant]
     Route: 065
  4. NASACORT [Concomitant]
     Route: 065
  5. PRED MILD EYE DROPS [Concomitant]
     Route: 047
  6. DIRUETIC WATER [Concomitant]
     Route: 048
  7. CRESTOR [Concomitant]
     Route: 065

REACTIONS (4)
  - ASTHENIA [None]
  - BLOOD PRESSURE INCREASED [None]
  - HEART RATE INCREASED [None]
  - PALPITATIONS [None]
